FAERS Safety Report 21553514 (Version 1)
Quarter: 2022Q4

REPORT INFORMATION
  Report Type: Spontaneous
  Country: RU (occurrence: RU)
  Receive Date: 20221104
  Receipt Date: 20221104
  Transmission Date: 20230113
  Serious: Yes (Other)
  Sender: FDA-Public Use
  Company Number: RU-ABBOTT-2022A-1355097

PATIENT

DRUGS (1)
  1. TRICOR [Suspect]
     Active Substance: FENOFIBRATE
     Indication: Product used for unknown indication
     Route: 065

REACTIONS (2)
  - Pancreatitis [Unknown]
  - Pancreatitis necrotising [Unknown]
